FAERS Safety Report 9007127 (Version 1)
Quarter: 2013Q1

REPORT INFORMATION
  Report Type: Spontaneous
  Country: DK (occurrence: DK)
  Receive Date: 20130110
  Receipt Date: 20130110
  Transmission Date: 20140127
  Serious: Yes (Life-Threatening, Hospitalization)
  Sender: FDA-Public Use
  Company Number: PHHY2013DK001939

PATIENT
  Age: 85 Year
  Sex: Male
  Weight: 65 kg

DRUGS (13)
  1. GABAPENTIN SANDOZ [Suspect]
     Indication: MEDICATION ERROR
     Dosage: 600 MG, UNK
     Route: 048
     Dates: start: 20130103, end: 20130103
  2. METADON [Suspect]
     Indication: MEDICATION ERROR
     Dosage: 10 MG, UNK
     Route: 048
     Dates: start: 20130103, end: 20130103
  3. OLANZAPINE [Suspect]
     Indication: MEDICATION ERROR
     Dosage: 5 MG, UNK
     Route: 048
     Dates: start: 20130103, end: 20130103
  4. AMLODIPIN [Concomitant]
     Indication: HYPERTENSION
     Dosage: 10 MG, QD
  5. CITALOPRAM [Concomitant]
     Dosage: 10 MG, QD
  6. CLOPIDOGREL [Concomitant]
     Dosage: 75 MG, QD
  7. METOPROLOL [Concomitant]
     Dosage: 25 MG, BID
  8. SIMVASTATIN [Concomitant]
     Dosage: 20 MG, QD
  9. MEDILAX [Concomitant]
     Dosage: 15 ML, BID
  10. CORODIL [Concomitant]
     Dosage: 5 MG, QD
  11. METFORMIN [Concomitant]
     Dosage: 500 MG, BID
  12. DESMOPRESSIN [Concomitant]
     Dosage: 120 UG, QD
  13. EBIXA [Concomitant]

REACTIONS (4)
  - Hypotension [Recovered/Resolved]
  - Respiratory depression [Recovered/Resolved]
  - Altered state of consciousness [Recovered/Resolved]
  - Medication error [Unknown]
